FAERS Safety Report 8808496 (Version 1)
Quarter: 2012Q4

REPORT INFORMATION
  Report Type: 
  Country: CZ (occurrence: CZ)
  Receive Date: 20120926
  Receipt Date: 20120926
  Transmission Date: 20130627
  Serious: Yes (Other)
  Sender: FDA-Public Use
  Company Number: CZ-AMGEN-CZESP2012059961

PATIENT
  Sex: Male

DRUGS (5)
  1. PROLIA [Suspect]
     Indication: PRODUCT USED FOR UNKNOWN INDICATION
     Dosage: UNK
     Dates: start: 201203
  2. RECOXA [Concomitant]
  3. ARAVA [Concomitant]
  4. MEDROL                             /00049601/ [Concomitant]
  5. METHOTREXATE [Concomitant]

REACTIONS (4)
  - Toe amputation [Unknown]
  - Fall [Unknown]
  - Contusion [Unknown]
  - Impaired healing [Not Recovered/Not Resolved]
